FAERS Safety Report 22642740 (Version 1)
Quarter: 2023Q2

REPORT INFORMATION
  Report Type: Spontaneous
  Country: DK (occurrence: DK)
  Receive Date: 20230627
  Receipt Date: 20230627
  Transmission Date: 20230722
  Serious: Yes (Hospitalization)
  Sender: FDA-Public Use
  Company Number: None

PATIENT
  Age: 57 Year
  Sex: Female

DRUGS (6)
  1. TYSABRI [Suspect]
     Active Substance: NATALIZUMAB
     Indication: Multiple sclerosis
     Dosage: LAST INJECTION WAS GIVEN ON 03APR2023. STRENGTH: 150 MG
     Route: 050
     Dates: start: 2013, end: 20230403
  2. TOLTERODIN STADA [Concomitant]
     Indication: Urinary incontinence
     Route: 050
     Dates: start: 20191129
  3. ACETAMINOPHEN [Concomitant]
     Active Substance: ACETAMINOPHEN
     Indication: Pain
     Route: 050
     Dates: start: 20221010
  4. MODAFINIL [Concomitant]
     Active Substance: MODAFINIL
     Indication: Narcolepsy
     Route: 050
     Dates: start: 20120302
  5. LYRIBASTAD [Concomitant]
     Indication: Pain
     Route: 050
     Dates: start: 20140422
  6. BISACODYL [Concomitant]
     Active Substance: BISACODYL
     Indication: Gastrointestinal examination
     Route: 050
     Dates: start: 20220711

REACTIONS (3)
  - Facial paresis [Not Recovered/Not Resolved]
  - Facial pain [Unknown]
  - Herpes zoster oticus [Not Recovered/Not Resolved]

NARRATIVE: CASE EVENT DATE: 20230503
